FAERS Safety Report 9738583 (Version 2)
Quarter: 2013Q4

REPORT INFORMATION
  Report Type: Spontaneous
  Country: US (occurrence: US)
  Receive Date: 20131209
  Receipt Date: 20131209
  Transmission Date: 20140711
  Serious: Yes (Disabling)
  Sender: FDA-Public Use
  Company Number: US-GE HEALTHCARE MEDICAL DIAGNOSTICS-OSCN-PR-1102S-0084

PATIENT
  Age: 37 Year
  Sex: Female

DRUGS (5)
  1. OMNISCAN [Suspect]
     Indication: INTESTINAL ISCHAEMIA
     Route: 042
     Dates: start: 20051027, end: 20051027
  2. MAGNEVIST (GADOPENTETATE DIMELUMINE) [Suspect]
     Indication: PRODUCT USED FOR UNKNOWN INDICATION
     Route: 042
     Dates: start: 20030808, end: 20030808
  3. MAGNEVIST (GADOPENTETATE DIMELUMINE) [Suspect]
     Indication: PITUITARY TUMOUR BENIGN
     Route: 042
     Dates: start: 20030812, end: 20030812
  4. MAGNEVIST (GADOPENTETATE DIMELUMINE) [Suspect]
     Dates: start: 20050412, end: 20050412
  5. MAGNEVIST (GADOPENTETATE DIMELUMINE) [Suspect]
     Route: 042
     Dates: start: 20060510, end: 20060510

REACTIONS (1)
  - Nephrogenic systemic fibrosis [Not Recovered/Not Resolved]
